FAERS Safety Report 4297022-0 (Version None)
Quarter: 2004Q1

REPORT INFORMATION
  Report Type: 
  Country: None (occurrence: None)
  Receive Date: 20040213
  Receipt Date: 20040203
  Transmission Date: 20041129
  Serious: Yes (Other)
  Sender: FDA-Public Use
  Company Number: CA-JNJFOC-20040100864

PATIENT

DRUGS (1)
  1. REMICADE [Suspect]
     Indication: RHEUMATOID ARTHRITIS
     Dosage: 300 MG, INTRAVENOUS
     Route: 042
     Dates: start: 20040112

REACTIONS (3)
  - HERPES ZOSTER [None]
  - NEURALGIA [None]
  - POST HERPETIC NEURALGIA [None]
